FAERS Safety Report 21496943 (Version 1)
Quarter: 2022Q4

REPORT INFORMATION
  Report Type: Spontaneous
  Country: PL (occurrence: PL)
  Receive Date: 20221023
  Receipt Date: 20221023
  Transmission Date: 20230112
  Serious: Yes (Other)
  Sender: FDA-Public Use
  Company Number: PL-KYOWAKIRIN-2022BKK016415

PATIENT

DRUGS (2)
  1. CRYSVITA [Suspect]
     Active Substance: BUROSUMAB-TWZA
     Indication: Hereditary hypophosphataemic rickets
     Dosage: 1X 10 MG, 1X/2 WEEKS
     Route: 058
  2. CHOLECALCIFEROL [Concomitant]
     Active Substance: CHOLECALCIFEROL
     Indication: Product used for unknown indication
     Dosage: ALTERNATELY 1X500J.M AND  1X 1000 J.M
     Route: 065

REACTIONS (2)
  - Craniosynostosis [Unknown]
  - Tooth abscess [Unknown]
